FAERS Safety Report 4690347-6 (Version None)
Quarter: 2005Q2

REPORT INFORMATION
  Report Type: 
  Country: None (occurrence: None)
  Receive Date: 20050615
  Receipt Date: 20050607
  Transmission Date: 20051028
  Serious: Yes (Hospitalization)
  Sender: FDA-Public Use
  Company Number: FR-ROCHE-407032

PATIENT
  Age: 67 Year
  Sex: Male

DRUGS (4)
  1. ROCEPHIN [Suspect]
     Indication: OSTEITIS
     Dosage: FORM REPORTED AS INJECTABLE SOLUTION.
     Route: 042
     Dates: start: 20041224
  2. COUMADIN [Interacting]
     Indication: DRUG USE FOR UNKNOWN INDICATION
     Route: 048
     Dates: start: 19960615, end: 20050125
  3. TADENAN [Concomitant]
     Route: 048
  4. STILNOX [Concomitant]
     Route: 048

REACTIONS (5)
  - ANAEMIA [None]
  - DRUG INTERACTION [None]
  - GASTRIC HAEMORRHAGE [None]
  - MALAISE [None]
  - PROTHROMBIN TIME SHORTENED [None]
